FAERS Safety Report 19013817 (Version 1)
Quarter: 2021Q1

REPORT INFORMATION
  Report Type: Spontaneous
  Country: ES (occurrence: ES)
  Receive Date: 20210316
  Receipt Date: 20210316
  Transmission Date: 20210420
  Serious: Yes (Other)
  Sender: FDA-Public Use
  Company Number: ES-CURIUM-200900531

PATIENT
  Age: 4 Year
  Sex: Female

DRUGS (3)
  1. SODIUM PERTECHNETATE TC 99M [Interacting]
     Active Substance: TECHNETIUM TC-99M SODIUM PERTECHNETATE
     Indication: BONE SCAN
     Dosage: 6 MCI, SINGLE??NUMBER OF SEPARATE DOSAGES: 1
     Route: 042
     Dates: start: 20081204, end: 20081204
  2. IBUPROFEN. [Interacting]
     Active Substance: IBUPROFEN
  3. TECHNESCAN HDP [Suspect]
     Active Substance: TECHNETIUM TC-99M OXIDRONATE
     Indication: BONE SCAN
     Dosage: UNK
     Route: 042
     Dates: start: 20081204, end: 20081204

REACTIONS (2)
  - Drug interaction [Recovered/Resolved]
  - Bone scan abnormal [Recovered/Resolved]

NARRATIVE: CASE EVENT DATE: 20081204
